FAERS Safety Report 10461078 (Version 1)
Quarter: 2014Q3

REPORT INFORMATION
  Report Type: Spontaneous
  Country: US (occurrence: US)
  Receive Date: 20140918
  Receipt Date: 20140918
  Transmission Date: 20150326
  Serious: No
  Sender: FDA-Public Use
  Company Number: US-TEVA-504297USA

PATIENT
  Sex: Female

DRUGS (1)
  1. ESCITALOPRAM [Suspect]
     Active Substance: ESCITALOPRAM OXALATE
     Indication: ANXIETY
     Route: 065
     Dates: start: 201407, end: 201408

REACTIONS (8)
  - Somnolence [Recovering/Resolving]
  - Paraesthesia [Recovering/Resolving]
  - Feeling drunk [Recovering/Resolving]
  - Fatigue [Recovering/Resolving]
  - Speech disorder [Recovering/Resolving]
  - Headache [Unknown]
  - Dizziness [Unknown]
  - Bradyphrenia [Recovering/Resolving]
